FAERS Safety Report 16570398 (Version 2)
Quarter: 2019Q3

REPORT INFORMATION
  Report Type: Report from Study
  Country: US (occurrence: US)
  Receive Date: 20190715
  Receipt Date: 20190822
  Transmission Date: 20191004
  Serious: Yes (Death, Life-Threatening, Hospitalization, Other)
  Sender: FDA-Public Use
  Company Number: US-BRISTOL-MYERS SQUIBB COMPANY-BMS-2019-067999

PATIENT
  Age: 68 Year
  Sex: Male
  Weight: 80 kg

DRUGS (2)
  1. IPILIMUMAB [Suspect]
     Active Substance: IPILIMUMAB
     Indication: T-CELL LYMPHOMA
     Dosage: 87.4 MILLIGRAM
     Route: 042
     Dates: start: 20181023, end: 20190319
  2. NIVOLUMAB [Suspect]
     Active Substance: NIVOLUMAB
     Indication: T-CELL LYMPHOMA
     Dosage: 262.2 MILLIGRAM
     Route: 042
     Dates: start: 20181023, end: 20190319

REACTIONS (7)
  - Respiratory failure [Unknown]
  - Septic shock [Recovered/Resolved]
  - Cardiogenic shock [Unknown]
  - Stress cardiomyopathy [Unknown]
  - Cardiac failure [Fatal]
  - Acute myocardial infarction [Fatal]
  - Febrile neutropenia [Unknown]

NARRATIVE: CASE EVENT DATE: 201906
